FAERS Safety Report 18385118 (Version 1)
Quarter: 2020Q4

REPORT INFORMATION
  Report Type: Report from Study
  Country: ES (occurrence: ES)
  Receive Date: 20201015
  Receipt Date: 20201015
  Transmission Date: 20210114
  Serious: Yes (Other)
  Sender: FDA-Public Use
  Company Number: ES-BRISTOL-MYERS SQUIBB COMPANY-BMS-2020-083205

PATIENT
  Age: 81 Year
  Sex: Male

DRUGS (6)
  1. IPILIMUMAB [Suspect]
     Active Substance: IPILIMUMAB
     Indication: METASTATIC MALIGNANT MELANOMA
     Dosage: FIRST CYCLE
     Route: 065
     Dates: start: 201801
  2. NIVOLUMAB [Suspect]
     Active Substance: NIVOLUMAB
     Dosage: SECOND CYCLE
     Route: 065
     Dates: start: 201802
  3. NIVOLUMAB [Suspect]
     Active Substance: NIVOLUMAB
     Indication: METASTATIC MALIGNANT MELANOMA
     Dosage: FIRST CYCLE
     Route: 065
     Dates: start: 201801
  4. IPILIMUMAB [Suspect]
     Active Substance: IPILIMUMAB
     Dosage: SECOND CYCLE
     Route: 065
     Dates: start: 201802
  5. IPILIMUMAB [Suspect]
     Active Substance: IPILIMUMAB
     Dosage: THIRD CYCLE
     Route: 065
     Dates: start: 201803
  6. NIVOLUMAB [Suspect]
     Active Substance: NIVOLUMAB
     Dosage: THIRD CYCLE
     Route: 065
     Dates: start: 201803

REACTIONS (5)
  - Lymphadenopathy [Unknown]
  - Arthralgia [Recovering/Resolving]
  - Vitiligo [Unknown]
  - Pneumonitis [Recovered/Resolved]
  - Colon cancer [Unknown]

NARRATIVE: CASE EVENT DATE: 201803
